FAERS Safety Report 8977979 (Version 1)
Quarter: 2012Q4

REPORT INFORMATION
  Report Type: 
  Country: FR (occurrence: FR)
  Receive Date: 20121219
  Receipt Date: 20121219
  Transmission Date: 20130627
  Serious: Yes (Hospitalization)
  Sender: FDA-Public Use
  Company Number: FR-009507513-1212FRA003982

PATIENT
  Age: 74 Year
  Sex: Female

DRUGS (2)
  1. NOROXINE [Suspect]
     Indication: URINARY TRACT INFECTION
     Dosage: UNK
     Route: 048
     Dates: start: 20120825, end: 20120831
  2. ENBREL [Suspect]
     Dosage: 25 mg, biw
     Dates: start: 2006, end: 20120830

REACTIONS (5)
  - Purpura [Unknown]
  - Skin reaction [Unknown]
  - Blister [Unknown]
  - Toxic skin eruption [Unknown]
  - Erythema [Unknown]
